FAERS Safety Report 4681720-0 (Version None)
Quarter: 2005Q2

REPORT INFORMATION
  Report Type: 
  Country: None (occurrence: None)
  Receive Date: 20050603
  Receipt Date: 20050310
  Transmission Date: 20051028
  Serious: Yes (Hospitalization)
  Sender: FDA-Public Use
  Company Number: US-MERCK-0503USA02045

PATIENT
  Age: 66 Year
  Sex: Female
  Weight: 91 kg

DRUGS (7)
  1. VIOXX [Suspect]
     Indication: ARTHRALGIA
     Route: 048
     Dates: start: 20010406, end: 20040602
  2. LIPITOR [Concomitant]
     Indication: BLOOD CHOLESTEROL INCREASED
     Route: 065
  3. LEVOXYL [Concomitant]
     Route: 065
  4. SYNTHROID [Concomitant]
     Indication: THYROID DISORDER
     Route: 065
  5. RANITIDINE [Concomitant]
     Route: 065
  6. AMBIEN [Concomitant]
     Route: 065
  7. ACETAMINOPHEN AND HYDROCODONE BITARTRATE [Concomitant]
     Route: 065

REACTIONS (24)
  - ANGIOPATHY [None]
  - ARTHRALGIA [None]
  - ARTHROPATHY [None]
  - ASPARTATE AMINOTRANSFERASE INCREASED [None]
  - BACK PAIN [None]
  - BLOOD THYROID STIMULATING HORMONE DECREASED [None]
  - CARDIAC DISORDER [None]
  - CORONARY ARTERY OCCLUSION [None]
  - CORONARY ARTERY STENOSIS [None]
  - EMOTIONAL DISTRESS [None]
  - EXOSTOSIS [None]
  - HAEMOGLOBIN DECREASED [None]
  - HYPERTENSION [None]
  - INTERVERTEBRAL DISC PROTRUSION [None]
  - LYMPHOCYTE PERCENTAGE DECREASED [None]
  - MEAN CELL HAEMOGLOBIN DECREASED [None]
  - MEAN CELL VOLUME DECREASED [None]
  - MONOCYTE PERCENTAGE DECREASED [None]
  - MYOCARDIAL INFARCTION [None]
  - NEUTROPHIL PERCENTAGE INCREASED [None]
  - OEDEMA PERIPHERAL [None]
  - OSTEOARTHRITIS [None]
  - PAIN IN EXTREMITY [None]
  - TENDON DISORDER [None]
